FAERS Safety Report 4481970-2 (Version None)
Quarter: 2004Q4

REPORT INFORMATION
  Report Type: 
  Country: None (occurrence: None)
  Receive Date: 20041020
  Receipt Date: 20041020
  Transmission Date: 20050328
  Serious: Yes (Other)
  Sender: FDA-Public Use
  Company Number: None

PATIENT
  Age: 71 Year
  Sex: Male
  Weight: 91.4 kg

DRUGS (1)
  1. MORPHINE [Suspect]

REACTIONS (1)
  - URTICARIA [None]
